FAERS Safety Report 8424387-8 (Version None)
Quarter: 2012Q2

REPORT INFORMATION
  Report Type: 
  Country: None (occurrence: None)
  Receive Date: 20120608
  Receipt Date: 20110705
  Transmission Date: 20120825
  Serious: No
  Sender: FDA-Public Use
  Company Number: US-ASTRAZENECA-2011SE40161

PATIENT
  Age: 83 Year
  Sex: Male

DRUGS (5)
  1. PULMICORT [Suspect]
     Indication: ASTHMA
     Route: 055
     Dates: start: 20010101
  2. TOPROL-XL [Concomitant]
     Indication: HYPERTENSION
  3. VITAMIN [Concomitant]
  4. FLOMAX [Concomitant]
     Indication: PROSTATIC DISORDER
  5. NASONEX [Concomitant]

REACTIONS (2)
  - WRONG TECHNIQUE IN DRUG USAGE PROCESS [None]
  - AMNESIA [None]
